FAERS Safety Report 8213010-3 (Version None)
Quarter: 2012Q1

REPORT INFORMATION
  Report Type: 
  Country: None (occurrence: None)
  Receive Date: 20120315
  Receipt Date: 20120313
  Transmission Date: 20120608
  Serious: Yes (Life-Threatening, Hospitalization)
  Sender: FDA-Public Use
  Company Number: CH-US-EMD SERONO, INC.-7114555

PATIENT
  Sex: Female
  Weight: 64 kg

DRUGS (5)
  1. TRIMIPRAMINE MALEATE [Concomitant]
     Indication: SLEEP DISORDER
     Route: 048
  2. CALCIUM [Concomitant]
     Indication: OSTEOPOROSIS
     Route: 048
  3. ACETAMINOPHEN [Concomitant]
     Indication: ADVERSE EVENT
  4. ACETAMINOPHEN [Concomitant]
     Indication: PAIN
     Route: 048
  5. REBIF [Suspect]
     Indication: MULTIPLE SCLEROSIS
     Route: 058
     Dates: start: 20070101

REACTIONS (4)
  - CEREBRAL HAEMORRHAGE [None]
  - GAIT DISTURBANCE [None]
  - MUSCULAR WEAKNESS [None]
  - HYPERTENSIVE CRISIS [None]
